FAERS Safety Report 22070046 (Version 1)
Quarter: 2023Q1

REPORT INFORMATION
  Report Type: Report from Study
  Country: US (occurrence: US)
  Receive Date: 20230307
  Receipt Date: 20230307
  Transmission Date: 20230418
  Serious: Yes (Hospitalization, Other)
  Sender: FDA-Public Use
  Company Number: US-TAKEDA-US201707411

PATIENT
  Age: 48 Year
  Sex: Female
  Weight: 59 kg

DRUGS (6)
  1. TEDUGLUTIDE [Suspect]
     Active Substance: TEDUGLUTIDE
     Indication: Short-bowel syndrome
     Dosage: 3.17 MG, 1X/DAY:QD (7 DOSES PER WEEK)
     Route: 058
     Dates: start: 20140212, end: 20141030
  2. TEDUGLUTIDE [Suspect]
     Active Substance: TEDUGLUTIDE
     Indication: Short-bowel syndrome
     Dosage: 3.17 MG, 1X/DAY:QD (7 DOSES PER WEEK)
     Route: 058
     Dates: start: 20140212, end: 20141030
  3. TEDUGLUTIDE [Suspect]
     Active Substance: TEDUGLUTIDE
     Indication: Short-bowel syndrome
     Dosage: 3.17 MG, 1X/DAY:QD (7 DOSES PER WEEK)
     Route: 058
     Dates: start: 20140212, end: 20141030
  4. TEDUGLUTIDE [Suspect]
     Active Substance: TEDUGLUTIDE
     Indication: Short-bowel syndrome
     Dosage: 3.17 MG, 1X/DAY:QD (7 DOSES PER WEEK)
     Route: 058
     Dates: start: 20140212, end: 20141030
  5. GUAIFENESIN AC [Concomitant]
     Active Substance: CODEINE PHOSPHATE\GUAIFENESIN
     Indication: Cough
     Dosage: 2 TSP, 3X/DAY:TID
     Route: 048
     Dates: start: 201610
  6. GUAIFENESIN AC [Concomitant]
     Active Substance: CODEINE PHOSPHATE\GUAIFENESIN
     Indication: Bronchitis

REACTIONS (1)
  - Septic shock [Recovered/Resolved]

NARRATIVE: CASE EVENT DATE: 20170328
